FAERS Safety Report 8556475-X (Version None)
Quarter: 2012Q3

REPORT INFORMATION
  Report Type: 
  Country: None (occurrence: None)
  Receive Date: 20120801
  Receipt Date: 20120730
  Transmission Date: 20120928
  Serious: Yes (Life-Threatening, Hospitalization, Other)
  Sender: FDA-Public Use
  Company Number: PHHY2012BG064931

PATIENT
  Age: 62 Year
  Sex: Female

DRUGS (2)
  1. INSULIN [Concomitant]
  2. TASIGNA [Suspect]
     Indication: CHRONIC MYELOID LEUKAEMIA
     Dosage: 400 MG, BID
     Route: 048
     Dates: start: 20110701, end: 20120201

REACTIONS (11)
  - APPLICATION SITE HAEMATOMA [None]
  - BONE MARROW FAILURE [None]
  - EPISTAXIS [None]
  - HAEMORRHAGIC DIATHESIS [None]
  - INFUSION SITE HAEMATOMA [None]
  - GENERAL PHYSICAL HEALTH DETERIORATION [None]
  - TRAUMATIC HAEMATOMA [None]
  - GINGIVAL BLEEDING [None]
  - PANCYTOPENIA [None]
  - DRUG INEFFECTIVE [None]
  - INJECTION SITE HAEMATOMA [None]
